FAERS Safety Report 24746349 (Version 1)
Quarter: 2024Q4

REPORT INFORMATION
  Report Type: Spontaneous
  Country: US (occurrence: US)
  Receive Date: 20241218
  Receipt Date: 20241218
  Transmission Date: 20250115
  Serious: No
  Sender: AUROBINDO
  Company Number: US-AUROBINDO-AUR-APL-2024-050006

PATIENT
  Sex: Male
  Weight: 83.9 kg

DRUGS (1)
  1. LENALIDOMIDE [Suspect]
     Active Substance: LENALIDOMIDE
     Indication: Plasma cell myeloma
     Dosage: UNK, DAILY (P.O. DAILY ON DAYS 1-28 OF 28- DAY CYCLE)
     Route: 048

REACTIONS (2)
  - Acne [Unknown]
  - Nasopharyngitis [Unknown]
